FAERS Safety Report 5932895-4 (Version None)
Quarter: 2008Q4

REPORT INFORMATION
  Report Type: 
  Country: None (occurrence: None)
  Receive Date: 20081028
  Receipt Date: 20081020
  Transmission Date: 20090506
  Serious: Yes (Life-Threatening, Hospitalization)
  Sender: FDA-Public Use
  Company Number: ES-AVENTIS-200815692EU

PATIENT
  Age: 79 Year
  Sex: Female

DRUGS (10)
  1. SEGURIL                            /00032601/ [Suspect]
     Route: 048
  2. ALDACTONE [Suspect]
     Route: 048
     Dates: start: 20080301, end: 20080404
  3. ENALAPRIL MALEATE [Suspect]
     Route: 048
     Dates: start: 20080301, end: 20080404
  4. PAROXETINE HCL [Concomitant]
     Route: 048
  5. WARFARIN SODIUM [Concomitant]
     Indication: AORTIC VALVE REPLACEMENT
     Dosage: DOSE: UNK
     Route: 048
     Dates: start: 20080301
  6. LORAZEPAM [Concomitant]
     Route: 048
  7. PANTOPRAZOLE SODIUM [Concomitant]
  8. ACETAMINOPHEN [Concomitant]
  9. FERROSANOL [Concomitant]
  10. XALATAN [Concomitant]

REACTIONS (4)
  - ACUTE PRERENAL FAILURE [None]
  - DRUG INTERACTION [None]
  - HYPERKALAEMIA [None]
  - VENTRICULAR TACHYCARDIA [None]
